FAERS Safety Report 5261942-0 (Version None)
Quarter: 2007Q1

REPORT INFORMATION
  Report Type: 
  Country: None (occurrence: None)
  Receive Date: 20070308
  Receipt Date: 20070227
  Transmission Date: 20070707
  Serious: Yes (Other)
  Sender: FDA-Public Use
  Company Number: 237367

PATIENT
  Age: 69 Year
  Sex: Female
  Weight: 70.3 kg

DRUGS (8)
  1. RITUXAN [Suspect]
     Indication: MULTIPLE SCLEROSIS
     Dosage: Q3M, INTRAVENOUS
     Route: 042
  2. ACETAMINOPHEN AND HYDROCODONE BITARTRATE [Concomitant]
  3. BACLOFEN [Concomitant]
  4. COUMADIN [Concomitant]
  5. CYMBALTA [Concomitant]
  6. SYNTHROID [Concomitant]
  7. MYSOLINE [Concomitant]
  8. STEROID (STEROID NOS) [Concomitant]

REACTIONS (1)
  - OEDEMA PERIPHERAL [None]
